FAERS Safety Report 24620573 (Version 1)
Quarter: 2024Q4

REPORT INFORMATION
  Report Type: Spontaneous
  Country: GB (occurrence: GB)
  Receive Date: 20241114
  Receipt Date: 20241114
  Transmission Date: 20250115
  Serious: Yes (Other)
  Sender: TEVA
  Company Number: None

PATIENT
  Age: 28 Year
  Sex: Male
  Weight: 90 kg

DRUGS (3)
  1. LEVOFLOXACIN [Suspect]
     Active Substance: LEVOFLOXACIN
     Indication: Epididymitis
     Route: 065
     Dates: start: 20241007, end: 20241011
  2. OFLOXACIN [Concomitant]
     Active Substance: OFLOXACIN
     Indication: Epididymitis
     Dates: start: 20240915, end: 20240924
  3. AMOXICILLIN [Concomitant]
     Active Substance: AMOXICILLIN
     Indication: Epididymitis
     Dates: start: 20241011, end: 20241018

REACTIONS (4)
  - Burning sensation [Not Recovered/Not Resolved]
  - Paraesthesia [Not Recovered/Not Resolved]
  - Medication error [Unknown]
  - Pain in extremity [Not Recovered/Not Resolved]

NARRATIVE: CASE EVENT DATE: 20241011
